FAERS Safety Report 7323332-6 (Version None)
Quarter: 2011Q1

REPORT INFORMATION
  Report Type: 
  Country: None (occurrence: None)
  Receive Date: 20110217
  Receipt Date: 20110202
  Transmission Date: 20110831
  Serious: Yes (Other)
  Sender: FDA-Public Use
  Company Number: DSJ-2011-02239

PATIENT
  Age: 69 Year
  Sex: Female

DRUGS (4)
  1. FLUOXETINE [Concomitant]
  2. AMLODIPINE BESYLATE AND OLMESARTAN MEDOXOMIL [Suspect]
     Indication: HYPERTENSION
     Dosage: 20/5 MG (1 IN 1 D),PER ORAL
     Route: 048
     Dates: start: 20080101
  3. ROSUVASTATIN [Suspect]
     Indication: HYPERCHOLESTEROLAEMIA
     Dosage: PER ORAL
     Route: 048
     Dates: start: 20080101, end: 20080101
  4. EZETIMIBE [Concomitant]

REACTIONS (3)
  - PAIN IN EXTREMITY [None]
  - CATARACT OPERATION [None]
  - COUGH [None]
